FAERS Safety Report 5393719-X (Version None)
Quarter: 2007Q3

REPORT INFORMATION
  Report Type: 
  Country: None (occurrence: None)
  Receive Date: 20070719
  Receipt Date: 20070719
  Transmission Date: 20080115
  Serious: Yes (Hospitalization)
  Sender: FDA-Public Use
  Company Number: None

PATIENT
  Age: 74 Year
  Sex: Male

DRUGS (2)
  1. FOSINOPRIL SODIUM [Suspect]
     Indication: HYPERTENSION
     Dosage: 40MG EVERY DAY PO
     Route: 048
     Dates: start: 19961217
  2. POTASSIUM CHLORIDE [Suspect]
     Dosage: 10MEQ EVERY DAY PO
     Route: 048
     Dates: start: 20070601, end: 20070616

REACTIONS (1)
  - HYPERKALAEMIA [None]
